FAERS Safety Report 14583657 (Version 1)
Quarter: 2018Q1

REPORT INFORMATION
  Report Type: Report from Study
  Country: BR (occurrence: BR)
  Receive Date: 20180228
  Receipt Date: 20180228
  Transmission Date: 20180509
  Serious: No
  Sender: FDA-Public Use
  Company Number: BR-JNJFOC-20180235837

PATIENT
  Sex: Male

DRUGS (1)
  1. REMICADE [Suspect]
     Active Substance: INFLIXIMAB
     Indication: CROHN^S DISEASE
     Route: 042

REACTIONS (6)
  - Asthenia [Unknown]
  - Malaise [Unknown]
  - Cutaneous symptom [Unknown]
  - Fatigue [Unknown]
  - Neoplasm [Unknown]
  - Fungal infection [Unknown]
